FAERS Safety Report 24097629 (Version 1)
Quarter: 2024Q3

REPORT INFORMATION
  Report Type: Spontaneous
  Country: US (occurrence: None)
  Receive Date: 20240715
  Receipt Date: 20240715
  Transmission Date: 20241016
  Serious: No
  Sender: Public
  Company Number: None

PATIENT
  Age: 66 Year
  Sex: Male

DRUGS (16)
  1. NUCALA [Suspect]
     Active Substance: MEPOLIZUMAB
     Indication: Nasal polyps
     Dosage: 400 MG/ML : MONTHLY SUBCUTANEOUS?
     Route: 058
     Dates: start: 20240522, end: 20240620
  2. ASPIRIN [Concomitant]
     Dates: start: 20240521
  3. ATORVASTATIN [Concomitant]
     Dates: start: 20240521
  4. AZELASTINE [Concomitant]
     Active Substance: AZELASTINE\AZELASTINE HYDROCHLORIDE
     Dates: start: 20240521
  5. BASAGLAR [Concomitant]
     Dates: start: 20240521
  6. CARVEDILOL [Concomitant]
     Active Substance: CARVEDILOL
     Dates: start: 20240521
  7. CLOPIDOGREL [Concomitant]
     Active Substance: CLOPIDOGREL BISULFATE
     Dates: start: 20240521
  8. FARXIGA [Concomitant]
     Dates: start: 20240521
  9. FUROSEMIDE [Concomitant]
     Dates: start: 20240521
  10. ISOSORBIDE MONONITRATE ER [Concomitant]
     Dates: start: 20240521
  11. KERENDIA [Concomitant]
     Active Substance: FINERENONE
     Dates: start: 20240521
  12. METFORMIN [Concomitant]
     Active Substance: METFORMIN HYDROCHLORIDE
     Dates: start: 20240521
  13. MONTELUKAST [Concomitant]
     Dates: start: 20240521
  14. NITROGLYCERIN [Concomitant]
     Dates: start: 20240521
  15. SERTRALINE [Concomitant]
     Dates: start: 20240521
  16. VITAMIN D3 [Concomitant]
     Active Substance: CHOLECALCIFEROL
     Dates: start: 20240521

REACTIONS (2)
  - Aphonia [None]
  - Dysphonia [None]

NARRATIVE: CASE EVENT DATE: 20240620
